FAERS Safety Report 12951123 (Version 2)
Quarter: 2017Q1

REPORT INFORMATION
  Report Type: Report from Study
  Country: US (occurrence: US)
  Receive Date: 20161117
  Receipt Date: 20170101
  Transmission Date: 20170428
  Serious: Yes (Other)
  Sender: FDA-Public Use
  Company Number: US-MALLINCKRODT-T201605748

PATIENT
  Age: 63 Year
  Sex: Female

DRUGS (2)
  1. REPOSITORY CORTICOTROPIN INJECTION [Suspect]
     Active Substance: CORTICOTROPIN
     Indication: PROTEINURIA
  2. REPOSITORY CORTICOTROPIN INJECTION [Suspect]
     Active Substance: CORTICOTROPIN
     Indication: GLOMERULONEPHRITIS MEMBRANOPROLIFERATIVE
     Dosage: 80 UNITS / 1 ML, 2 TIMES PER WEEK (MON. AND THUR.)
     Route: 058
     Dates: start: 20161013

REACTIONS (5)
  - Seasonal allergy [Not Recovered/Not Resolved]
  - Fall [Recovering/Resolving]
  - Proteinuria [Not Recovered/Not Resolved]
  - Weight increased [Not Recovered/Not Resolved]
  - Foot fracture [Recovering/Resolving]

NARRATIVE: CASE EVENT DATE: 20161011
